FAERS Safety Report 8448714-0 (Version None)
Quarter: 2012Q2

REPORT INFORMATION
  Report Type: 
  Country: None (occurrence: None)
  Receive Date: 20120619
  Receipt Date: 20120605
  Transmission Date: 20120825
  Serious: Yes (Hospitalization, Other)
  Sender: FDA-Public Use
  Company Number: AU-NOVEN-12AU004770

PATIENT
  Age: 26 Year
  Sex: Female

DRUGS (2)
  1. PAROXETINE [Suspect]
     Indication: PRODUCT USED FOR UNKNOWN INDICATION
     Dosage: 20 MG, QD
     Route: 065
  2. UNKNOWN [Concomitant]

REACTIONS (10)
  - PHYSICAL ASSAULT [None]
  - ANGER [None]
  - RESTLESSNESS [None]
  - PANIC ATTACK [None]
  - IMPULSIVE BEHAVIOUR [None]
  - SUICIDAL IDEATION [None]
  - OVERDOSE [None]
  - SUICIDE ATTEMPT [None]
  - ADJUSTMENT DISORDER [None]
  - MARITAL PROBLEM [None]
